FAERS Safety Report 8241614-0 (Version None)
Quarter: 2012Q1

REPORT INFORMATION
  Report Type: 
  Country: None (occurrence: None)
  Receive Date: 20120328
  Receipt Date: 20120313
  Transmission Date: 20120608
  Serious: Yes (Hospitalization, Other)
  Sender: FDA-Public Use
  Company Number: GB-ARROW GEN-2011-22131

PATIENT
  Age: 61 Year
  Sex: Male
  Weight: 87.6 kg

DRUGS (7)
  1. CEFUROXIME [Concomitant]
     Indication: ANTIBIOTIC PROPHYLAXIS
     Dosage: 1.5 G, UNKNOWN
     Route: 042
     Dates: start: 20110112, end: 20110112
  2. PRADAXA [Suspect]
     Indication: THROMBOSIS PROPHYLAXIS
     Dosage: 110-220MG
     Route: 048
     Dates: start: 20110112, end: 20110113
  3. OXYCONTIN [Concomitant]
     Indication: ANALGESIC THERAPY
     Dosage: 10 MG, UNKNOWN
     Route: 048
     Dates: start: 20110114, end: 20110115
  4. KETOROLAC TROMETHAMINE [Suspect]
     Indication: POSTOPERATIVE ANALGESIA
     Dosage: 30 MG, UNKNOWN
     Route: 042
     Dates: start: 20110112, end: 20110112
  5. ALLOPURINOL [Concomitant]
     Indication: GOUT
     Dosage: 300 MG, UNKNOWN
     Route: 048
     Dates: start: 20110113
  6. MELOXICAM [Suspect]
     Indication: ANALGESIC THERAPY
     Dosage: 15 MG, UNKNOWN
     Route: 048
     Dates: start: 20110113
  7. ACETAMINOPHEN [Concomitant]
     Indication: ANALGESIC THERAPY
     Dosage: 1 G, UNKNOWN
     Route: 048
     Dates: start: 20110113

REACTIONS (1)
  - POST PROCEDURAL HAEMORRHAGE [None]
